FAERS Safety Report 6364479-0 (Version None)
Quarter: 2009Q3

REPORT INFORMATION
  Report Type: 
  Country: None (occurrence: None)
  Receive Date: 20090919
  Receipt Date: 20090721
  Transmission Date: 20100115
  Serious: No
  Sender: FDA-Public Use
  Company Number: US-ABBOTT-09P-163-0587352-00

PATIENT
  Sex: Female
  Weight: 62.652 kg

DRUGS (1)
  1. HUMIRA [Suspect]
     Indication: CROHN'S DISEASE
     Dosage: DAY 1
     Dates: start: 20090715

REACTIONS (5)
  - BLOOD PRESSURE DECREASED [None]
  - EYE DISCHARGE [None]
  - EYE SWELLING [None]
  - OCULAR HYPERAEMIA [None]
  - VISUAL IMPAIRMENT [None]
